FAERS Safety Report 5115055-9 (Version None)
Quarter: 2006Q3

REPORT INFORMATION
  Report Type: 
  Country: None (occurrence: None)
  Receive Date: 20060921
  Receipt Date: 20060831
  Transmission Date: 20061208
  Serious: Yes (Life-Threatening, Hospitalization, Disabling, Other)
  Sender: FDA-Public Use
  Company Number: 2006RR-03710

PATIENT
  Age: 53 Year
  Sex: Female
  Weight: 72 kg

DRUGS (7)
  1. LORATADINE [Suspect]
     Dosage: 10 MG, ORAL
     Route: 048
     Dates: start: 20060710, end: 20060710
  2. AMOXICILLIN [Concomitant]
  3. DIGOXIN [Concomitant]
  4. LISINOPRIL [Concomitant]
  5. PREDNISOLONE [Concomitant]
  6. SALBUTAMOL TABLETS BP 2MG (SALBUTAMOL) [Concomitant]
  7. SERETIDE [Concomitant]

REACTIONS (2)
  - CARDIAC ARREST [None]
  - VENTRICULAR FIBRILLATION [None]
